FAERS Safety Report 20000170 (Version 1)
Quarter: 2021Q4

REPORT INFORMATION
  Report Type: Spontaneous
  Country: JP (occurrence: JP)
  Receive Date: 20211026
  Receipt Date: 20211026
  Transmission Date: 20220303
  Serious: Yes (Hospitalization, Other)
  Sender: FDA-Public Use
  Company Number: JP-GSKJP-JP2021JPN215786AA

PATIENT
  Age: 41 Year
  Sex: Male

DRUGS (2)
  1. HEPSERA [Suspect]
     Active Substance: ADEFOVIR DIPIVOXIL
     Indication: Product used for unknown indication
     Dosage: UNK
     Route: 065
  2. ZEFIX [Suspect]
     Active Substance: LAMIVUDINE
     Indication: Product used for unknown indication
     Dosage: UNK
     Route: 065

REACTIONS (10)
  - Malaise [Unknown]
  - Hypokalaemia [Unknown]
  - Fanconi syndrome acquired [Unknown]
  - Nephritis [Unknown]
  - Renal tubular atrophy [Unknown]
  - Aminoaciduria [Unknown]
  - Drug resistance [Unknown]
  - Hypophosphataemia [Unknown]
  - Metabolic acidosis [Unknown]
  - Hypouricaemia [Unknown]
